FAERS Safety Report 5959203-7 (Version None)
Quarter: 2008Q4

REPORT INFORMATION
  Report Type: 
  Country: None (occurrence: None)
  Receive Date: 20081120
  Receipt Date: 20080818
  Transmission Date: 20090506
  Serious: No
  Sender: FDA-Public Use
  Company Number: A0733459A

PATIENT
  Age: 39 Year
  Sex: Male

DRUGS (2)
  1. BUPROPION HYDROCHLORIDE [Suspect]
     Dosage: 150MG TWICE PER DAY
     Route: 048
     Dates: start: 20080501
  2. CHANTIX [Concomitant]

REACTIONS (5)
  - DYSGEUSIA [None]
  - FLATULENCE [None]
  - MEDICATION RESIDUE [None]
  - ORAL DISCOMFORT [None]
  - PRODUCT QUALITY ISSUE [None]
